FAERS Safety Report 22259446 (Version 5)
Quarter: 2024Q1

REPORT INFORMATION
  Report Type: Spontaneous
  Country: US (occurrence: US)
  Receive Date: 20230427
  Receipt Date: 20240125
  Transmission Date: 20240409
  Serious: No
  Sender: FDA-Public Use
  Company Number: US-BRISTOL-MYERS SQUIBB COMPANY-2023-060329

PATIENT
  Age: 74 Year
  Sex: Female
  Weight: 77.3 kg

DRUGS (4)
  1. LENALIDOMIDE [Suspect]
     Active Substance: LENALIDOMIDE
     Indication: Plasma cell myeloma
     Dosage: FREQUENCY: 1 CAPSULE ONCE EVERY DAY FOR 28 DAY
     Route: 048
     Dates: start: 20221026
  2. LENALIDOMIDE [Suspect]
     Active Substance: LENALIDOMIDE
     Dosage: DAILY X 28 DAYS ON
     Route: 048
     Dates: start: 20230426
  3. LENALIDOMIDE [Suspect]
     Active Substance: LENALIDOMIDE
     Dosage: DAILY X 28-DAY CYCLE
     Route: 048
     Dates: start: 20221026
  4. LENALIDOMIDE [Suspect]
     Active Substance: LENALIDOMIDE
     Dosage: DAILY X 28-DAY CYCLE
     Route: 048
     Dates: start: 20221026

REACTIONS (8)
  - Diarrhoea [Not Recovered/Not Resolved]
  - Hypersensitivity [Not Recovered/Not Resolved]
  - Rash [Not Recovered/Not Resolved]
  - Decreased appetite [Not Recovered/Not Resolved]
  - Treatment noncompliance [Unknown]
  - Tremor [Not Recovered/Not Resolved]
  - Head titubation [Not Recovered/Not Resolved]
  - Balance disorder [Not Recovered/Not Resolved]
